FAERS Safety Report 8178769-2 (Version None)
Quarter: 2012Q1

REPORT INFORMATION
  Report Type: 
  Country: None (occurrence: None)
  Receive Date: 20120301
  Receipt Date: 20120221
  Transmission Date: 20120608
  Serious: Yes (Other)
  Sender: FDA-Public Use
  Company Number: US-ASTRAZENECA-2012SE12205

PATIENT
  Age: 60 Year
  Sex: Male

DRUGS (1)
  1. NEXIUM [Suspect]
     Route: 048

REACTIONS (10)
  - ULCER HAEMORRHAGE [None]
  - DIABETES MELLITUS [None]
  - HEPATIC CANCER STAGE IV [None]
  - NEPHROLITHIASIS [None]
  - NEOPLASM MALIGNANT [None]
  - CARCINOID SYNDROME [None]
  - GASTRIC NEOPLASM [None]
  - OESOPHAGEAL NEOPLASM [None]
  - HAEMORRHAGE [None]
  - CRYING [None]
